FAERS Safety Report 10047141 (Version 1)
Quarter: 2014Q1

REPORT INFORMATION
  Report Type: Spontaneous
  Country: US (occurrence: US)
  Receive Date: 20140331
  Receipt Date: 20140331
  Transmission Date: 20141002
  Serious: No
  Sender: FDA-Public Use
  Company Number: US-MYLANLABS-2013S1011956

PATIENT
  Age: 52 Year
  Sex: Female
  Weight: 54.43 kg

DRUGS (7)
  1. FENTANYL TRANSDERMAL SYSTEM [Suspect]
     Indication: FIBROMYALGIA
     Dosage: Q72H
     Route: 062
     Dates: start: 2012
  2. NUCYNTA [Concomitant]
     Indication: BREAKTHROUGH PAIN
     Route: 048
     Dates: start: 2012
  3. CLONAZEPAM [Concomitant]
     Indication: FEELING JITTERY
     Dosage: TAKEN AS NEEDED, UP TO BID.
     Route: 048
     Dates: start: 201304
  4. CYMBALTA [Concomitant]
     Indication: DEPRESSION
     Route: 048
  5. CITALOPRAM [Concomitant]
     Indication: DEPRESSION
     Route: 048
  6. LEVOTHYROXINE [Concomitant]
     Indication: AUTOIMMUNE THYROIDITIS
     Route: 048
     Dates: start: 2009
  7. RESTASIS [Concomitant]
     Indication: SJOGREN^S SYNDROME
     Dosage: EYE DROPS, USED IN BOTH EYES, BID FOR CHRONIC DRY EYE AND SJOGREN^S SYNDROME
     Route: 031

REACTIONS (2)
  - Insomnia [Not Recovered/Not Resolved]
  - Feeling jittery [Not Recovered/Not Resolved]
